FAERS Safety Report 5455015-1 (Version None)
Quarter: 2007Q3

REPORT INFORMATION
  Report Type: 
  Country: None (occurrence: None)
  Receive Date: 20070918
  Receipt Date: 20070914
  Transmission Date: 20080115
  Serious: Yes (Death, Hospitalization, Other)
  Sender: FDA-Public Use
  Company Number: PHMT2007CA01572

PATIENT
  Age: 69 Year
  Sex: Female
  Weight: 55.8 kg

DRUGS (2)
  1. EXJADE [Suspect]
     Indication: IRON OVERLOAD
     Dosage: 1000 MG, DAILY
     Route: 048
     Dates: start: 20070101, end: 20070603
  2. ELTROXIN [Concomitant]

REACTIONS (2)
  - DEATH [None]
  - LEUKAEMIA [None]
